FAERS Safety Report 4649026-3 (Version None)
Quarter: 2005Q2

REPORT INFORMATION
  Report Type: 
  Country: None (occurrence: None)
  Receive Date: 20050429
  Receipt Date: 20050415
  Transmission Date: 20051028
  Serious: Yes (Death, Hospitalization)
  Sender: FDA-Public Use
  Company Number: US-ROCHE-402157

PATIENT
  Age: 68 Year
  Sex: Female
  Weight: 53 kg

DRUGS (4)
  1. CAPECITABINE [Suspect]
     Dosage: TAKEN DAILY ON DAYS ONE THROUGH FOURTEEN OF EACH THREE WEEK CYCLE
     Route: 048
     Dates: start: 20050309, end: 20050412
  2. OXALIPLATIN [Suspect]
     Route: 042
     Dates: start: 20050309, end: 20050330
  3. OXYCONTIN [Concomitant]
     Dosage: DRUG REPORTED AS ^OXYCONTIN 10 B.I.D, OXYCODONE 20 MG QD^
  4. URSODIOL [Concomitant]

REACTIONS (11)
  - ABDOMINAL PAIN [None]
  - ABDOMINAL REBOUND TENDERNESS [None]
  - DEATH [None]
  - DEHYDRATION [None]
  - DELIRIUM [None]
  - DIARRHOEA [None]
  - HYPOMAGNESAEMIA [None]
  - INTESTINAL PERFORATION [None]
  - NAUSEA [None]
  - PYREXIA [None]
  - VOMITING [None]
